FAERS Safety Report 5147912-1 (Version None)
Quarter: 2006Q4

REPORT INFORMATION
  Report Type: 
  Country: None (occurrence: None)
  Receive Date: 20061106
  Receipt Date: 20061023
  Transmission Date: 20070319
  Serious: Yes (Other)
  Sender: FDA-Public Use
  Company Number: 2006129534

PATIENT
  Sex: Male

DRUGS (1)
  1. TROVAN [Suspect]

REACTIONS (1)
  - LUNG INFILTRATION [None]
